FAERS Safety Report 21293764 (Version 5)
Quarter: 2023Q1

REPORT INFORMATION
  Report Type: Report from Study
  Country: US (occurrence: US)
  Receive Date: 20220905
  Receipt Date: 20230331
  Transmission Date: 20230417
  Serious: Yes (Other)
  Sender: FDA-Public Use
  Company Number: US-NOVARTISTESTPH-NVSC2022US198577

PATIENT
  Sex: Male

DRUGS (1)
  1. ENTRESTO [Suspect]
     Active Substance: SACUBITRIL\VALSARTAN
     Indication: Product used for unknown indication
     Dosage: 1 DOSAGE FORM, BID (24/26 MG)
     Route: 048
     Dates: start: 202207

REACTIONS (13)
  - Coronary artery occlusion [Unknown]
  - Weight fluctuation [Unknown]
  - Peripheral swelling [Unknown]
  - Stress [Unknown]
  - Dehydration [Recovering/Resolving]
  - Glucose tolerance impaired [Unknown]
  - Chest pain [Unknown]
  - Gout [Recovering/Resolving]
  - Blood cholesterol increased [Unknown]
  - Helicobacter infection [Unknown]
  - Nasopharyngitis [Recovering/Resolving]
  - Hypotension [Unknown]
  - Diarrhoea [Unknown]
